FAERS Safety Report 21557829 (Version 3)
Quarter: 2022Q4

REPORT INFORMATION
  Report Type: Spontaneous
  Country: FR (occurrence: FR)
  Receive Date: 20221106
  Receipt Date: 20221202
  Transmission Date: 20230112
  Serious: Yes (Other)
  Sender: FDA-Public Use
  Company Number: FR-Eisai Medical Research-EC-2022-123276

PATIENT
  Age: 78 Year
  Sex: Female

DRUGS (2)
  1. KEYTRUDA [Suspect]
     Active Substance: PEMBROLIZUMAB
     Indication: Endometrial cancer
     Dosage: UNKNOWN DOSE AND FREQUENCY
     Route: 041
     Dates: start: 2022
  2. LENVATINIB MESYLATE [Suspect]
     Active Substance: LENVATINIB MESYLATE
     Indication: Endometrial cancer
     Dosage: 10 MILLIGRAM, QD
     Route: 048
     Dates: start: 2022, end: 20220907

REACTIONS (1)
  - Ischaemic cerebral infarction [Recovering/Resolving]

NARRATIVE: CASE EVENT DATE: 20220101
